FAERS Safety Report 4313014-7 (Version None)
Quarter: 2004Q1

REPORT INFORMATION
  Report Type: 
  Country: None (occurrence: None)
  Receive Date: 20040308
  Receipt Date: 20021016
  Transmission Date: 20041129
  Serious: Yes (Hospitalization)
  Sender: FDA-Public Use
  Company Number: US-BRISTOL-MYERS SQUIBB COMPANY-12080321

PATIENT
  Age: 37 Year
  Sex: Female

DRUGS (4)
  1. SERZONE [Suspect]
     Indication: DEPRESSION
     Dosage: 200 TO 400 MG DAILY
     Route: 048
     Dates: start: 20010424, end: 20011227
  2. SERZONE [Suspect]
     Indication: ANXIETY
     Dosage: 200 TO 400 MG DAILY
     Route: 048
     Dates: start: 20010424, end: 20011227
  3. WELLBUTRIN [Concomitant]
     Dosage: DOSE VALUE:  100 TO 200 MG
  4. KLONOPIN [Concomitant]

REACTIONS (8)
  - ASCITES [None]
  - DIZZINESS [None]
  - DYSURIA [None]
  - HEPATIC FAILURE [None]
  - HEPATIC FIBROSIS [None]
  - HEPATIC NECROSIS [None]
  - HEPATITIS TOXIC [None]
  - HEPATOCELLULAR DAMAGE [None]
